FAERS Safety Report 9304920 (Version 1)
Quarter: 2013Q2

REPORT INFORMATION
  Report Type: Spontaneous
  Country: BR (occurrence: BR)
  Receive Date: 20130523
  Receipt Date: 20130523
  Transmission Date: 20140414
  Serious: No
  Sender: FDA-Public Use
  Company Number: BR-JNJFOC-20130508233

PATIENT
  Age: 34 Year
  Sex: Male
  Weight: 82 kg

DRUGS (8)
  1. DUROGESIC D-TRANS [Suspect]
     Indication: PAIN MANAGEMENT
     Dosage: ONE PATCH OF 50 UG/HR, ONE PATCH OF 25 UG/HR AND ONE PATCH OF 12.5 UG/HR
     Route: 062
     Dates: start: 201203
  2. LYRICA [Concomitant]
     Indication: PAIN MANAGEMENT
     Route: 065
     Dates: start: 201206
  3. METHADONE HYDROCHLORIDE [Concomitant]
     Indication: PAIN MANAGEMENT
     Route: 065
     Dates: start: 2011
  4. PROCIMAX [Concomitant]
     Indication: MIGRAINE PROPHYLAXIS
     Route: 065
     Dates: start: 201207
  5. PROCIMAX [Concomitant]
     Indication: ANTIDEPRESSANT THERAPY
     Route: 065
     Dates: start: 201207
  6. DOLAMIN FLEX [Concomitant]
     Indication: MIGRAINE PROPHYLAXIS
     Route: 065
     Dates: start: 201203
  7. DOLAMIN FLEX [Concomitant]
     Indication: MUSCLE RELAXANT THERAPY
     Route: 065
     Dates: start: 201203
  8. SUMAX (SUMATRIPTAN) [Concomitant]
     Indication: MIGRAINE
     Route: 065
     Dates: start: 2008

REACTIONS (7)
  - Migraine [Not Recovered/Not Resolved]
  - Nausea [Not Recovered/Not Resolved]
  - Dizziness [Not Recovered/Not Resolved]
  - Malaise [Not Recovered/Not Resolved]
  - Constipation [Not Recovered/Not Resolved]
  - Wrong technique in drug usage process [Unknown]
  - Product quality issue [Unknown]
